FAERS Safety Report 6182034-2 (Version None)
Quarter: 2009Q2

REPORT INFORMATION
  Report Type: 
  Country: None (occurrence: None)
  Receive Date: 20090507
  Receipt Date: 20090430
  Transmission Date: 20091009
  Serious: Yes (Hospitalization)
  Sender: FDA-Public Use
  Company Number: JP-ABBOTT-09P-087-0571205-00

PATIENT
  Sex: Female
  Weight: 56.6 kg

DRUGS (2)
  1. CLARITHROMYCIN [Suspect]
     Indication: PNEUMONIA
     Route: 048
     Dates: start: 20090404, end: 20090410
  2. ROCEPHIN [Suspect]
     Indication: PNEUMONIA
     Route: 050
     Dates: start: 20090330, end: 20090410

REACTIONS (2)
  - PYREXIA [None]
  - RASH [None]
